FAERS Safety Report 8198932 (Version 12)
Quarter: 2015Q1

REPORT INFORMATION
  Report Type: Report from Study
  Country: HU (occurrence: HU)
  Receive Date: 20111025
  Receipt Date: 20150310
  Transmission Date: 20150721
  Serious: Yes (Hospitalization)
  Sender: FDA-Public Use
  Company Number: HU-ROCHE-798410

PATIENT
  Age: 61 Year
  Sex: Male
  Weight: 87.2 kg

DRUGS (21)
  1. STILNOX [Concomitant]
     Active Substance: ZOLPIDEM TARTRATE
     Route: 065
     Dates: start: 2008
  2. TRAMADOL [Concomitant]
     Active Substance: TRAMADOL
     Route: 065
     Dates: start: 201108, end: 20110818
  3. PANTOPRAZOLE [Concomitant]
     Active Substance: PANTOPRAZOLE SODIUM
     Route: 065
     Dates: start: 2008
  4. COPRENESSA [Concomitant]
     Route: 065
     Dates: start: 2008
  5. CORYOL [Concomitant]
     Active Substance: CARVEDILOL
     Route: 065
     Dates: start: 2008
  6. NO-SPA [Concomitant]
     Active Substance: DROTAVERINE HYDROCHLORIDE
     Route: 065
     Dates: start: 2008
  7. VEMURAFENIB [Interacting]
     Active Substance: VEMURAFENIB
     Route: 048
  8. ATORIS [Concomitant]
     Active Substance: ATORVASTATIN CALCIUM
     Route: 065
     Dates: start: 2008
  9. MYDETON [Concomitant]
     Route: 065
     Dates: start: 2008
  10. IBUPROFEN. [Interacting]
     Active Substance: IBUPROFEN
     Indication: PAIN
     Dosage: 1 TABLET IN CASE OF JOIN PAIN
     Route: 065
     Dates: start: 201108, end: 20110818
  11. TRAMADOL [Concomitant]
     Active Substance: TRAMADOL
     Dosage: 1 TABLET IN CASE OF PAIN.
     Route: 065
     Dates: start: 201108, end: 20110818
  12. FRONTIN [Concomitant]
     Active Substance: ALPRAZOLAM
     Route: 065
     Dates: start: 2008
  13. SPIRIVA [Concomitant]
     Active Substance: TIOTROPIUM BROMIDE MONOHYDRATE
     Dosage: 1 PUFF
     Route: 065
     Dates: start: 2008
  14. VENTOLIN [Concomitant]
     Active Substance: ALBUTEROL SULFATE
     Dosage: 2 / PUFF
     Route: 065
     Dates: start: 2008
  15. VEMURAFENIB [Suspect]
     Active Substance: VEMURAFENIB
     Indication: METASTATIC MALIGNANT MELANOMA
     Dosage: DOSAGE FORM: FILM COATED TABLETS
     Route: 048
     Dates: start: 20110718, end: 20110819
  16. TENAXUM [Concomitant]
     Active Substance: RILMENIDINE
     Route: 065
     Dates: start: 2008
  17. DOXAZOSIN [Concomitant]
     Active Substance: DOXAZOSIN\DOXAZOSIN MESYLATE
     Route: 065
     Dates: start: 2008
  18. ONDANSETRON [Concomitant]
     Active Substance: ONDANSETRON
     Route: 065
     Dates: start: 2008
  19. EBRANTIL [Concomitant]
     Active Substance: URAPIDIL
     Route: 065
     Dates: end: 2008
  20. METFOGAMMA [Concomitant]
     Route: 065
     Dates: start: 2008
  21. PARACETAMOL [Interacting]
     Active Substance: ACETAMINOPHEN
     Indication: PAIN
     Dosage: 1 TABLET IN CASE OF JOIN PAIN.
     Route: 065
     Dates: start: 201108, end: 20110818

REACTIONS (2)
  - Drug interaction [Unknown]
  - Dehydration [Recovered/Resolved]

NARRATIVE: CASE EVENT DATE: 20110818
